FAERS Safety Report 4924426-2 (Version None)
Quarter: 2006Q1

REPORT INFORMATION
  Report Type: 
  Country: None (occurrence: None)
  Receive Date: 20060227
  Receipt Date: 20051109
  Transmission Date: 20060701
  Serious: Yes (Hospitalization)
  Sender: FDA-Public Use
  Company Number: JP-ROCHE-425137

PATIENT
  Age: 66 Year
  Sex: Male
  Weight: 69 kg

DRUGS (9)
  1. PEGASYS [Suspect]
     Route: 058
     Dates: start: 20051025
  2. ASPIRIN [Concomitant]
     Dosage: ROUTE REPORTED AS ENTERIC.
     Route: 048
     Dates: start: 20050902
  3. LANIRAPID [Concomitant]
     Route: 048
     Dates: start: 20050902
  4. MICARDIS [Concomitant]
     Route: 048
     Dates: start: 20050902
  5. TAKEPRON [Concomitant]
     Route: 048
     Dates: start: 20050902
  6. MUCOSTA [Concomitant]
     Dosage: FORM REPORTED AS ORAL FORMULATION.
     Route: 048
     Dates: start: 20050902
  7. MEXITIL [Concomitant]
     Route: 048
     Dates: start: 20050902
  8. HALCION [Concomitant]
     Route: 048
     Dates: start: 20050902
  9. KEISHI-BUKURYO-GAN [Concomitant]
     Dosage: FORM REPORTED AS ORAL FORMULATION.
     Route: 048
     Dates: start: 20050902

REACTIONS (1)
  - HYPOTHERMIA [None]
